FAERS Safety Report 8308028-6 (Version None)
Quarter: 2012Q2

REPORT INFORMATION
  Report Type: 
  Country: None (occurrence: None)
  Receive Date: 20120420
  Receipt Date: 20120323
  Transmission Date: 20120825
  Serious: Yes (Other)
  Sender: FDA-Public Use
  Company Number: 2012000063

PATIENT
  Age: 88 Year
  Sex: Female
  Weight: 70 kg

DRUGS (5)
  1. DITHIAZIDE (HYDROCHLOROTHIAZIDE) [Concomitant]
  2. ASPIRIN [Concomitant]
  3. ACEON [Suspect]
     Indication: PRODUCT USED FOR UNKNOWN INDICATION
     Dosage: 5 MG, QD
  4. FELODIPINE [Concomitant]
  5. SIMVASTATIN [Concomitant]

REACTIONS (4)
  - DIARRHOEA [None]
  - HYPONATRAEMIA [None]
  - PRESYNCOPE [None]
  - FATIGUE [None]
